FAERS Safety Report 10769901 (Version 1)
Quarter: 2015Q1

REPORT INFORMATION
  Report Type: Spontaneous
  Country: US (occurrence: US)
  Receive Date: 20150206
  Receipt Date: 20150206
  Transmission Date: 20150721
  Serious: Yes (Hospitalization)
  Sender: FDA-Public Use
  Company Number: US-BIOMARINAP-US-2015-105445

PATIENT
  Age: 33 Year
  Sex: Female

DRUGS (1)
  1. ALDURAZYME [Suspect]
     Active Substance: LARONIDASE
     Indication: MUCOPOLYSACCHARIDOSIS I
     Dosage: 29 MG, QW
     Route: 041
     Dates: start: 2005

REACTIONS (3)
  - Drug dose omission [None]
  - Affect lability [Unknown]
  - Mental disorder [Unknown]

NARRATIVE: CASE EVENT DATE: 201501
